FAERS Safety Report 7350175-X (Version None)
Quarter: 2011Q1

REPORT INFORMATION
  Report Type: 
  Country: None (occurrence: None)
  Receive Date: 20110314
  Receipt Date: 20110308
  Transmission Date: 20110831
  Serious: Yes (Hospitalization)
  Sender: FDA-Public Use
  Company Number: B0700293A

PATIENT
  Age: 55 Year
  Sex: Male

DRUGS (1)
  1. AVANDIA [Suspect]
     Indication: DIABETES MELLITUS
     Dosage: 4MG PER DAY
     Route: 048
     Dates: start: 20001001, end: 20050601

REACTIONS (6)
  - CARDIOMEGALY [None]
  - CARDIAC FAILURE [None]
  - DIALYSIS [None]
  - RENAL FAILURE CHRONIC [None]
  - HEART RATE IRREGULAR [None]
  - RENAL FAILURE [None]
